FAERS Safety Report 7861732-6 (Version None)
Quarter: 2011Q4

REPORT INFORMATION
  Report Type: 
  Country: None (occurrence: None)
  Receive Date: 20111027
  Receipt Date: 20111017
  Transmission Date: 20120403
  Serious: Yes (Hospitalization)
  Sender: FDA-Public Use
  Company Number: PHHY2011AT92730

PATIENT

DRUGS (6)
  1. GLUCOPHAGE [Concomitant]
     Dosage: 1000 MG, UNK
  2. VITAMIN B COMPLEX CAP [Concomitant]
  3. GABAPENTIN [Suspect]
     Indication: CONVULSION
     Dosage: 300 MG, TID
     Route: 048
     Dates: start: 20110809, end: 20110815
  4. CONCOR [Concomitant]
     Dosage: 5 MG, UNK
  5. PANTOPRAZOLE [Concomitant]
     Dosage: 40 MG, UNK
  6. MAGNESIUM [Concomitant]

REACTIONS (2)
  - BLOOD COUNT ABNORMAL [None]
  - RED BLOOD CELL COUNT DECREASED [None]
